FAERS Safety Report 4451341-3 (Version None)
Quarter: 2004Q3

REPORT INFORMATION
  Report Type: 
  Country: None (occurrence: None)
  Receive Date: 20040916
  Receipt Date: 20040907
  Transmission Date: 20050211
  Serious: Yes (Other)
  Sender: FDA-Public Use
  Company Number: AU-GLAXOSMITHKLINE-B0345344A

PATIENT
  Sex: Male

DRUGS (2)
  1. PAROXETINE HCL [Suspect]
     Indication: ANXIETY
     Route: 065
  2. NO CONCURRENT MEDICATIONS [Concomitant]

REACTIONS (4)
  - AMNESIA [None]
  - LIBIDO INCREASED [None]
  - SUICIDAL IDEATION [None]
  - UNEXPECTED THERAPEUTIC DRUG EFFECT [None]
